FAERS Safety Report 19797780 (Version 1)
Quarter: 2021Q3

REPORT INFORMATION
  Report Type: Spontaneous
  Country: US (occurrence: US)
  Receive Date: 20210906
  Receipt Date: 20210906
  Transmission Date: 20211014
  Serious: Yes (Hospitalization, Disabling, Other)
  Sender: FDA-Public Use
  Company Number: None

PATIENT
  Age: 12 Year
  Sex: Female
  Weight: 57.15 kg

DRUGS (7)
  1. QVAR [Concomitant]
     Active Substance: BECLOMETHASONE DIPROPIONATE
  2. MONTELUKAST GENERIC FOR SINGULAIR [Suspect]
     Active Substance: MONTELUKAST\MONTELUKAST SODIUM
     Indication: HYPERSENSITIVITY
     Route: 048
     Dates: start: 20200601, end: 20210331
  3. ZYPREXA [Concomitant]
     Active Substance: OLANZAPINE
  4. VIT D [Concomitant]
     Active Substance: VITAMIN D NOS
  5. MONTELUKAST GENERIC FOR SINGULAIR [Suspect]
     Active Substance: MONTELUKAST\MONTELUKAST SODIUM
     Indication: ASTHMA
     Route: 048
     Dates: start: 20200601, end: 20210331
  6. PROZAC [Concomitant]
     Active Substance: FLUOXETINE HYDROCHLORIDE
  7. MULTIVITAMIN [Concomitant]
     Active Substance: VITAMINS

REACTIONS (3)
  - Anorexia nervosa [None]
  - Anxiety [None]
  - Depression [None]

NARRATIVE: CASE EVENT DATE: 20201101
